FAERS Safety Report 21462513 (Version 2)
Quarter: 2023Q1

REPORT INFORMATION
  Report Type: Spontaneous
  Country: US (occurrence: US)
  Receive Date: 20221016
  Receipt Date: 20230118
  Transmission Date: 20230418
  Serious: Yes (Death, Hospitalization, Other)
  Sender: FDA-Public Use
  Company Number: US-BRISTOL-MYERS SQUIBB COMPANY-2022-121458

PATIENT
  Age: 61 Year
  Sex: Male

DRUGS (2)
  1. OPDIVO [Suspect]
     Active Substance: NIVOLUMAB
     Indication: Malignant melanoma
     Route: 042
  2. YERVOY [Suspect]
     Active Substance: IPILIMUMAB
     Indication: Malignant melanoma
     Route: 042

REACTIONS (10)
  - Drug ineffective [Unknown]
  - Platelet count decreased [Fatal]
  - Weight increased [Unknown]
  - Abdominal distension [Unknown]
  - Testicular disorder [Unknown]
  - Weight decreased [Unknown]
  - Myocardial infarction [Unknown]
  - Gait disturbance [Unknown]
  - Recurrent cancer [Unknown]
  - Spinal cord neoplasm [Unknown]
